FAERS Safety Report 16670856 (Version 1)
Quarter: 2019Q3

REPORT INFORMATION
  Report Type: Spontaneous
  Country: US (occurrence: US)
  Receive Date: 20190805
  Receipt Date: 20190805
  Transmission Date: 20191004
  Serious: No
  Sender: FDA-Public Use
  Company Number: US-RADIUS HEALTH INC.-2019US002121

PATIENT
  Age: 62 Year
  Sex: Female

DRUGS (2)
  1. TYMLOS [Suspect]
     Active Substance: ABALOPARATIDE
     Indication: OSTEOPOROSIS POSTMENOPAUSAL
     Dosage: 80 MCG, QD
     Route: 058
     Dates: start: 20190510
  2. TYMLOS [Suspect]
     Active Substance: ABALOPARATIDE
     Indication: COMPRESSION FRACTURE

REACTIONS (4)
  - Back pain [Unknown]
  - Off label use [Unknown]
  - Product storage error [Unknown]
  - Dysuria [Unknown]

NARRATIVE: CASE EVENT DATE: 20190616
